FAERS Safety Report 24214057 (Version 2)
Quarter: 2024Q3

REPORT INFORMATION
  Report Type: Spontaneous
  Country: PL (occurrence: PL)
  Receive Date: 20240815
  Receipt Date: 20240904
  Transmission Date: 20241017
  Serious: Yes (Other)
  Sender: REGENERON
  Company Number: PL-SA-2024SA233652

PATIENT
  Age: 80 Year
  Sex: Female

DRUGS (1)
  1. LIBTAYO [Suspect]
     Active Substance: CEMIPLIMAB-RWLC
     Indication: Squamous cell carcinoma
     Dosage: 350 MG, Q3W
     Route: 042
     Dates: start: 2022, end: 2022

REACTIONS (8)
  - Liver injury [Recovered/Resolved]
  - Abdominal distension [Recovered/Resolved]
  - Autoimmune thyroiditis [Recovered/Resolved]
  - Hepatotoxicity [Recovered/Resolved]
  - Abdominal pain upper [Recovered/Resolved]
  - Hepatocellular injury [Recovered/Resolved]
  - Hyperthyroidism [Recovered/Resolved]
  - Hypothyroidism [Recovered/Resolved]
